FAERS Safety Report 15121024 (Version 1)
Quarter: 2018Q3

REPORT INFORMATION
  Report Type: Spontaneous
  Country: US (occurrence: US)
  Receive Date: 20180709
  Receipt Date: 20180709
  Transmission Date: 20181010
  Serious: Yes (Other)
  Sender: FDA-Public Use
  Company Number: US-SA-2017SA265622

PATIENT
  Age: 59 Year
  Sex: Female
  Weight: 90.71 kg

DRUGS (9)
  1. TAXOTERE [Suspect]
     Active Substance: DOCETAXEL
     Dosage: UNK, QM
     Route: 051
     Dates: start: 20090401, end: 20090401
  2. PIOGLITAZONE. [Concomitant]
     Active Substance: PIOGLITAZONE
  3. GLIMEPIRIDE. [Concomitant]
     Active Substance: GLIMEPIRIDE
  4. TAXOTERE [Suspect]
     Active Substance: DOCETAXEL
     Indication: UTERINE CANCER
     Dosage: UNK, QM
     Route: 051
     Dates: start: 20081105, end: 20081105
  5. PARAPLATIN [Concomitant]
     Active Substance: CARBOPLATIN
  6. TAXOL [Concomitant]
     Active Substance: PACLITAXEL
  7. ATORVASTATIN [Concomitant]
     Active Substance: ATORVASTATIN
  8. HYDRALAZINE [Concomitant]
     Active Substance: HYDRALAZINE HYDROCHLORIDE
  9. METOPROLOL. [Concomitant]
     Active Substance: METOPROLOL

REACTIONS (6)
  - Anxiety [Unknown]
  - Psychological trauma [Unknown]
  - Pain [Unknown]
  - Emotional distress [Unknown]
  - Alopecia [Recovering/Resolving]
  - Impaired quality of life [Unknown]
